FAERS Safety Report 5481693-7 (Version None)
Quarter: 2007Q3

REPORT INFORMATION
  Report Type: 
  Country: None (occurrence: None)
  Receive Date: 20070917
  Receipt Date: 20061101
  Transmission Date: 20080115
  Serious: Yes (Other)
  Sender: FDA-Public Use
  Company Number: 2006-BP-12831BP

PATIENT
  Sex: 0

DRUGS (1)
  1. VIRAMUNE [Suspect]
     Dosage: (200 MG), PO
     Route: 048

REACTIONS (1)
  - STEVENS-JOHNSON SYNDROME [None]
